FAERS Safety Report 15652228 (Version 2)
Quarter: 2018Q4

REPORT INFORMATION
  Report Type: Spontaneous
  Country: US (occurrence: US)
  Receive Date: 20181123
  Receipt Date: 20181205
  Transmission Date: 20190205
  Serious: Yes (Other)
  Sender: FDA-Public Use
  Company Number: US-ALLERGAN-1854516US

PATIENT
  Age: 59 Year
  Sex: Female

DRUGS (2)
  1. PREDNISONE. [Concomitant]
     Active Substance: PREDNISONE
     Indication: SCLERITIS
     Dosage: UNK
     Route: 065
  2. OZURDEX [Suspect]
     Active Substance: DEXAMETHASONE
     Indication: SCLERITIS
     Dosage: 0.7 MG, SINGLE
     Route: 031

REACTIONS (4)
  - Complication of device insertion [Unknown]
  - Product administered at inappropriate site [Unknown]
  - Cataract traumatic [Recovering/Resolving]
  - Off label use [Unknown]
